FAERS Safety Report 8215983-1 (Version None)
Quarter: 2012Q1

REPORT INFORMATION
  Report Type: 
  Country: None (occurrence: None)
  Receive Date: 20120316
  Receipt Date: 20120312
  Transmission Date: 20120608
  Serious: No
  Sender: FDA-Public Use
  Company Number: US-PFIZER INC-2012067346

PATIENT
  Sex: Female

DRUGS (8)
  1. CODEINE SULFATE [Suspect]
     Dosage: UNK
  2. FOSAMAX [Suspect]
     Dosage: UNK
  3. ERYTHROMYCIN [Suspect]
     Dosage: UNK
  4. ROFECOXIB [Suspect]
     Dosage: UNK
  5. ZITHROMAX [Suspect]
     Dosage: UNK
  6. CELECOXIB [Suspect]
     Dosage: UNK
  7. NIACIN [Suspect]
     Dosage: UNK
  8. LEVAQUIN [Suspect]
     Dosage: UNK

REACTIONS (1)
  - DRUG HYPERSENSITIVITY [None]
